FAERS Safety Report 16752805 (Version 1)
Quarter: 2019Q3

REPORT INFORMATION
  Report Type: Report from Study
  Country: US (occurrence: US)
  Receive Date: 20190829
  Receipt Date: 20190829
  Transmission Date: 20191005
  Serious: Yes (Other)
  Sender: FDA-Public Use
  Company Number: US-BIOGEN-2019BI00779276

PATIENT
  Sex: Female

DRUGS (1)
  1. TECFIDERA [Suspect]
     Active Substance: DIMETHYL FUMARATE
     Indication: MULTIPLE SCLEROSIS
     Route: 065
     Dates: start: 20181114, end: 20190601

REACTIONS (6)
  - Muscle spasms [Not Recovered/Not Resolved]
  - Flushing [Recovered/Resolved]
  - Central nervous system lesion [Unknown]
  - Cervix carcinoma [Unknown]
  - Immunosuppression [Not Recovered/Not Resolved]
  - Fatigue [Recovered/Resolved]
